FAERS Safety Report 19638594 (Version 1)
Quarter: 2021Q3

REPORT INFORMATION
  Report Type: Spontaneous
  Country: NL (occurrence: NL)
  Receive Date: 20210730
  Receipt Date: 20210730
  Transmission Date: 20211014
  Serious: Yes (Other)
  Sender: FDA-Public Use
  Company Number: NL-TEVA-2021-NL-1937868

PATIENT
  Age: 33 Year
  Sex: Female
  Weight: 65 kg

DRUGS (6)
  1. VERAPAMIL HYDROCHLORIDE / BRAND NAME NOT SPECIFIED [Concomitant]
     Active Substance: VERAPAMIL HYDROCHLORIDE
     Dosage: 60 MILLIGRAM DAILY; THERAPY START DATE ASKU, THERAPY END DATE ASKU,(DELAYED RELEASE TABLET)
  2. OXAZEPAM TABLET 10MG / BRAND NAME NOT SPECIFIED [Concomitant]
     Active Substance: OXAZEPAM
     Dosage: 10 MG AS NEEDED (LAST USE JULY 4, 2021),THERAPY START DATE ASKU, THERAPY END DATE ASKU
  3. OMEPRAZOL CAPSULE MSR 20MG / MAAGZUURREMMER OMEPRAZOL CF CAPSULE MSR 2 [Concomitant]
     Dosage: 40 MILLIGRAM DAILY; 1X DAILY 40 MG, THERAPY START DATE ASKU, THERAPY END DATE ASKU
  4. DOXAZOSINE TABLET MGA 4MG / BRAND NAME NOT SPECIFIED [Suspect]
     Active Substance: DOXAZOSIN MESYLATE
     Indication: POST-TRAUMATIC STRESS DISORDER
     Dosage: 4 MILLIGRAM DAILY;
     Route: 065
     Dates: start: 20210709, end: 20210710
  5. FLUOXETINE DISPERTABLET 20MG / BRAND NAME NOT SPECIFIED [Concomitant]
     Active Substance: FLUOXETINE HYDROCHLORIDE
     Dosage: THERAPY START DATE ASKU, THERAPY END DATE ASKU, 20 MG
  6. ETHINYLESTRADIOL/LEVONORGESTREL TABLET 20/100UG / MICROGYNON 20 TABLET [Concomitant]
     Dosage: THERAPY START DATE ASKU, THERAPY END DATE ASKU, 20/100 UG, 1DF

REACTIONS (7)
  - Tachycardia [Recovering/Resolving]
  - Tremor [Unknown]
  - Presyncope [Recovering/Resolving]
  - Nausea [Unknown]
  - Arrhythmia [Recovering/Resolving]
  - Dizziness [Unknown]
  - Feeling hot [Unknown]

NARRATIVE: CASE EVENT DATE: 20210710
